FAERS Safety Report 16696092 (Version 1)
Quarter: 2019Q3

REPORT INFORMATION
  Report Type: Spontaneous
  Country: US (occurrence: US)
  Receive Date: 20190813
  Receipt Date: 20190813
  Transmission Date: 20191004
  Serious: No
  Sender: FDA-Public Use
  Company Number: US-AUROBINDO-AUR-APL-2018-049080

PATIENT
  Sex: Male

DRUGS (1)
  1. LEVOFLOXACIN TABLET [Suspect]
     Active Substance: LEVOFLOXACIN
     Indication: CONJUNCTIVITIS BACTERIAL
     Dosage: UNK
     Route: 065

REACTIONS (1)
  - Pruritus [Unknown]
